FAERS Safety Report 19273072 (Version 1)
Quarter: 2021Q2

REPORT INFORMATION
  Report Type: Spontaneous
  Country: CN (occurrence: CN)
  Receive Date: 20210519
  Receipt Date: 20210519
  Transmission Date: 20210717
  Serious: Yes (Other)
  Sender: FDA-Public Use
  Company Number: CN-COEPTIS PHARMACEUTICALS, INC.-COE-2021-000050

PATIENT

DRUGS (3)
  1. AMLODIPINE [Suspect]
     Active Substance: AMLODIPINE BESYLATE
     Indication: ESSENTIAL HYPERTENSION
     Route: 048
  2. TELMISARTAN. [Suspect]
     Active Substance: TELMISARTAN
     Indication: ESSENTIAL HYPERTENSION
     Route: 048
  3. COMPOUND AMILORIDE HYDROCHLORIDE + HYDROCHLOROTHIAZIDE [Suspect]
     Active Substance: AMILORIDE HYDROCHLORIDE\HYDROCHLOROTHIAZIDE
     Indication: ESSENTIAL HYPERTENSION
     Dosage: HALF TABLET (EACH TABLET CONTAINS 25 MG AMILORIDE HYDROCHLORIDE AND 25 MG HYDROCHLOROTHIAZIDE)
     Route: 048

REACTIONS (3)
  - Oedema peripheral [Unknown]
  - Headache [Unknown]
  - Hypokalaemia [Unknown]
